FAERS Safety Report 6403182-5 (Version None)
Quarter: 2009Q4

REPORT INFORMATION
  Report Type: 
  Country: None (occurrence: None)
  Receive Date: 20091015
  Receipt Date: 20091015
  Transmission Date: 20100525
  Serious: Yes (Hospitalization)
  Sender: FDA-Public Use
  Company Number: None

PATIENT
  Age: 75 Year
  Sex: Male

DRUGS (3)
  1. DRONEDARONE HCL [Suspect]
     Indication: ATRIAL FIBRILLATION
     Dosage: 400 MG PO BID
     Route: 048
     Dates: start: 20090814, end: 20090816
  2. FUROSEMIDE [Suspect]
     Indication: OEDEMA
     Dosage: 40 MG TID PO
     Route: 048
     Dates: start: 20090812, end: 20090815
  3. LISINOPRIL [Suspect]
     Indication: OEDEMA
     Dosage: 40 MG TID PO
     Route: 048
     Dates: start: 20090812, end: 20090815

REACTIONS (1)
  - TUBULOINTERSTITIAL NEPHRITIS [None]
